FAERS Safety Report 10073616 (Version 5)
Quarter: 2014Q2

REPORT INFORMATION
  Report Type: Report from Study
  Country: AR (occurrence: AR)
  Receive Date: 20140411
  Receipt Date: 20140623
  Transmission Date: 20141212
  Serious: Yes (Life-Threatening, Hospitalization)
  Sender: FDA-Public Use
  Company Number: PHHY2014AR044349

PATIENT
  Sex: Male
  Weight: 64 kg

DRUGS (8)
  1. MYFORTIC [Suspect]
     Indication: TRANSPLANT REJECTION
     Dosage: 1440 MG, DAILY
     Route: 048
     Dates: start: 20130914, end: 20140311
  2. MYFORTIC [Suspect]
     Dosage: 720 MG, UNK
     Route: 048
     Dates: end: 20140328
  3. MYFORTIC [Suspect]
     Route: 048
     Dates: start: 20140519
  4. VALGANCICLOVIR [Concomitant]
     Indication: CYTOMEGALOVIRUS INFECTION
     Dosage: 450 MG, DAILY
     Route: 048
     Dates: start: 20140311, end: 20140401
  5. VALGANCICLOVIR [Concomitant]
     Indication: SOFT TISSUE INFECTION
  6. VALGANCICLOVIR [Concomitant]
     Indication: PSEUDOMONAS INFECTION
  7. TACROLIMUS [Concomitant]
     Indication: PROPHYLAXIS AGAINST TRANSPLANT REJECTION
     Dosage: 0.5 MG, UNK
     Dates: start: 20130916
  8. ITRACONAZOLE [Concomitant]
     Indication: SKIN LESION
     Dosage: 400 MG, UNK
     Dates: start: 20140102

REACTIONS (13)
  - Febrile neutropenia [Recovered/Resolved]
  - Cytomegalovirus infection [Recovered/Resolved]
  - Hyperkalaemia [Recovered/Resolved]
  - Muscular weakness [Unknown]
  - Leukopenia [Recovered/Resolved]
  - Urinary tract infection pseudomonal [Recovered/Resolved]
  - Fungal infection [Recovered/Resolved]
  - Soft tissue infection [Recovered/Resolved]
  - Urinary tract infection [Recovered/Resolved]
  - Pyrexia [Unknown]
  - Dysuria [Unknown]
  - Haematocrit decreased [Unknown]
  - Bladder dysfunction [Recovered/Resolved]
